FAERS Safety Report 8957608 (Version 2)
Quarter: 2013Q1

REPORT INFORMATION
  Report Type: Spontaneous
  Country: US (occurrence: US)
  Receive Date: 20121210
  Receipt Date: 20130228
  Transmission Date: 20140127
  Serious: Yes (Other)
  Sender: FDA-Public Use
  Company Number: US-PFIZER INC-2012310016

PATIENT
  Age: 78 Year
  Sex: Male
  Weight: 75.74 kg

DRUGS (4)
  1. LIPITOR [Suspect]
     Indication: BLOOD CHOLESTEROL ABNORMAL
     Dosage: 80 MG, 1X/DAY
     Route: 048
     Dates: start: 2001
  2. QUINAPRIL HCL [Suspect]
     Indication: BLOOD PRESSURE ABNORMAL
     Dosage: UNK
  3. ASPIRIN [Concomitant]
     Dosage: 81 MG, 1X/DAY
     Route: 048
  4. COUMADIN [Concomitant]
     Indication: ANTICOAGULANT THERAPY
     Dosage: 5MG TABLETS ON MON AND FRI, 7.5 MG TABLETS TUES, THURS, SAT, SUNDAY (IN MORNING ONLY)
     Route: 048

REACTIONS (2)
  - Neoplasm malignant [Recovered/Resolved]
  - Hypotension [Unknown]
